FAERS Safety Report 7569170-0 (Version None)
Quarter: 2011Q2

REPORT INFORMATION
  Report Type: 
  Country: None (occurrence: None)
  Receive Date: 20110623
  Receipt Date: 20110610
  Transmission Date: 20111010
  Serious: Yes (Other)
  Sender: FDA-Public Use
  Company Number: PHHY2011BR52487

PATIENT
  Sex: Male

DRUGS (2)
  1. GALVUS MET [Suspect]
  2. DIOVAN [Suspect]

REACTIONS (3)
  - DIABETIC EYE DISEASE [None]
  - DIABETIC NEPHROPATHY [None]
  - DIABETES MELLITUS [None]
